FAERS Safety Report 26120168 (Version 1)
Quarter: 2025Q4

REPORT INFORMATION
  Report Type: Spontaneous
  Country: TR (occurrence: TR)
  Receive Date: 20251204
  Receipt Date: 20251204
  Transmission Date: 20260117
  Serious: Yes (Other)
  Sender: RECORDATI
  Company Number: TR-ORPHANEU-2025008720

PATIENT
  Age: 6 Decade
  Sex: Male

DRUGS (3)
  1. ISTURISA [Suspect]
     Active Substance: OSILODROSTAT PHOSPHATE
     Indication: Pituitary-dependent Cushing^s syndrome
     Dosage: 1 MG, BID (2X1 MG FOR 3 DAYS)
     Dates: start: 20251122, end: 20251124
  2. ISTURISA [Suspect]
     Active Substance: OSILODROSTAT PHOSPHATE
     Dosage: 2 MG, BID (2X2 MG FOR LAST 2 DAYS)
     Dates: start: 20251125, end: 20251126
  3. KETOCONAZOLE [Concomitant]
     Active Substance: KETOCONAZOLE
     Indication: Product used for unknown indication
     Dosage: UNK

REACTIONS (4)
  - Leukopenia [Unknown]
  - Thrombocytopenia [Unknown]
  - Cystitis [Unknown]
  - Dysuria [Unknown]

NARRATIVE: CASE EVENT DATE: 20251101
